FAERS Safety Report 10018586 (Version 1)
Quarter: 2014Q1

REPORT INFORMATION
  Report Type: Spontaneous
  Country: US (occurrence: US)
  Receive Date: 20140318
  Receipt Date: 20140318
  Transmission Date: 20141002
  Serious: Yes (Hospitalization)
  Sender: FDA-Public Use
  Company Number: US-BAYER-2014-037980

PATIENT
  Age: 20 Year
  Sex: Female
  Weight: 143 kg

DRUGS (3)
  1. YASMIN [Suspect]
     Indication: MENSTRUATION IRREGULAR
  2. NAPROXEN [Concomitant]
     Indication: PHLEBITIS SUPERFICIAL
  3. VIOXX [Concomitant]

REACTIONS (2)
  - Pulmonary embolism [None]
  - Phlebitis superficial [None]
